FAERS Safety Report 9013471 (Version 1)
Quarter: 2012Q4

REPORT INFORMATION
  Report Type: Spontaneous
  Country: US (occurrence: None)
  Receive Date: 20121231
  Receipt Date: 20121231
  Transmission Date: 20130627
  Serious: Yes (Death)
  Sender: FDA-Public Use
  Company Number: AUR-APL-2012-05538

PATIENT
  Age: 31 Year
  Sex: Male

DRUGS (7)
  1. MIRTAZAPINE [Suspect]
     Indication: DEPRESSION
     Route: 048
     Dates: start: 2012
  2. MIRTAZAPINE [Suspect]
     Indication: DEPRESSION
     Route: 048
     Dates: start: 20120824
  3. QUETIAPINE [Suspect]
     Indication: DEPRESSION
     Route: 048
     Dates: start: 2011
  4. QUETIAPINE [Suspect]
     Indication: DEPRESSION
     Route: 048
     Dates: start: 20120824
  5. CIPRALEX [Suspect]
     Indication: DEPRESSION
     Route: 048
     Dates: start: 20120823
  6. CIPRALEX [Suspect]
     Indication: DEPRESSION
     Dates: start: 20120824
  7. DIAZEPAM (DIAZEPAM) [Concomitant]

REACTIONS (3)
  - Overdose [None]
  - Accidental death [None]
  - Toxicity to various agents [None]
